FAERS Safety Report 5167236-6 (Version None)
Quarter: 2006Q4

REPORT INFORMATION
  Report Type: 
  Country: None (occurrence: None)
  Receive Date: 20061130
  Receipt Date: 20061117
  Transmission Date: 20070319
  Serious: Yes (Hospitalization)
  Sender: FDA-Public Use
  Company Number: 2006143228

PATIENT
  Age: 55 Year
  Sex: Male

DRUGS (5)
  1. SERTRALINE [Suspect]
     Indication: POST-TRAUMATIC STRESS DISORDER
  2. TRAZODONE HCL [Suspect]
     Indication: POST-TRAUMATIC STRESS DISORDER
     Dosage: 100 MG
  3. RISPERIDONE [Suspect]
     Indication: POST-TRAUMATIC STRESS DISORDER
  4. VENLAFAXINE HCL [Suspect]
     Indication: POST-TRAUMATIC STRESS DISORDER
  5. TOPIRAMATE [Suspect]
     Indication: POST-TRAUMATIC STRESS DISORDER

REACTIONS (3)
  - DRY MOUTH [None]
  - GENERAL PHYSICAL HEALTH DETERIORATION [None]
  - THERAPY NON-RESPONDER [None]
